FAERS Safety Report 6256629-1 (Version None)
Quarter: 2009Q3

REPORT INFORMATION
  Report Type: 
  Country: None (occurrence: None)
  Receive Date: 20090706
  Receipt Date: 20090630
  Transmission Date: 20100115
  Serious: Yes (Hospitalization, Other)
  Sender: FDA-Public Use
  Company Number: US-JNJFOC-20090609805

PATIENT
  Age: 75 Year
  Sex: Female

DRUGS (1)
  1. LEVOFLOXACIN [Suspect]
     Indication: HIP ARTHROPLASTY
     Route: 065

REACTIONS (5)
  - DELIRIUM [None]
  - DRUG ERUPTION [None]
  - RENAL FAILURE ACUTE [None]
  - SEPSIS [None]
  - TUBULOINTERSTITIAL NEPHRITIS [None]
